FAERS Safety Report 8981501 (Version 3)
Quarter: 2013Q1

REPORT INFORMATION
  Report Type: Spontaneous
  Country: US (occurrence: US)
  Receive Date: 20121221
  Receipt Date: 20130128
  Transmission Date: 20140127
  Serious: No
  Sender: FDA-Public Use
  Company Number: US-JNJFOC-20121206311

PATIENT
  Sex: Male
  Weight: 95.26 kg

DRUGS (7)
  1. DURAGESIC [Suspect]
     Indication: PAIN
     Route: 062
     Dates: start: 2012
  2. DURAGESIC [Suspect]
     Indication: PAIN
     Route: 062
     Dates: start: 2008, end: 2012
  3. AMBIEN [Concomitant]
     Indication: SLEEP DISORDER
     Dosage: AT BED TIME
     Route: 048
  4. CYMBALTA [Concomitant]
     Indication: DEPRESSION
     Route: 048
  5. LYRICA [Concomitant]
     Indication: RADICULOPATHY
     Route: 048
     Dates: start: 2004
  6. MODAFINIL [Concomitant]
     Indication: SLEEP DISORDER
     Dosage: IN MORNING
     Route: 048
  7. OXYCODONE HCL [Concomitant]
     Indication: BREAKTHROUGH PAIN
     Dosage: 10/325 MG EVERY 4-6 HOURS
     Route: 048

REACTIONS (9)
  - Application site pain [Unknown]
  - Wrong technique in drug usage process [Unknown]
  - Application site pruritus [Not Recovered/Not Resolved]
  - Dermatitis contact [Not Recovered/Not Resolved]
  - Application site pain [Unknown]
  - Pain [Not Recovered/Not Resolved]
  - Wrong technique in drug usage process [Recovered/Resolved]
  - Product quality issue [Unknown]
  - Drug administered at inappropriate site [Unknown]
